FAERS Safety Report 8739250 (Version 6)
Quarter: 2013Q1

REPORT INFORMATION
  Report Type: Report from Study
  Country: US (occurrence: US)
  Receive Date: 20120823
  Receipt Date: 20130214
  Transmission Date: 20140127
  Serious: Yes (Hospitalization)
  Sender: FDA-Public Use
  Company Number: US-JNJFOC-20120809370

PATIENT
  Age: 16 Year
  Sex: Male
  Weight: 65.77 kg

DRUGS (7)
  1. REMICADE [Suspect]
     Indication: COLITIS ULCERATIVE
     Route: 042
     Dates: start: 20110209, end: 20110324
  2. PREDNISONE [Concomitant]
  3. CLOMIPRAMINE [Concomitant]
  4. ATOMOXETINE [Concomitant]
  5. CETIRIZINE [Concomitant]
  6. CLOMIPRAMINE [Concomitant]
  7. FEXOFENADINE [Concomitant]

REACTIONS (2)
  - Colitis ulcerative [Recovered/Resolved]
  - Pneumonia [Recovered/Resolved]
